FAERS Safety Report 7772827-X (Version None)
Quarter: 2011Q3

REPORT INFORMATION
  Report Type: 
  Country: None (occurrence: None)
  Receive Date: 20110922
  Receipt Date: 20110616
  Transmission Date: 20111222
  Serious: No
  Sender: FDA-Public Use
  Company Number: US-ASTRAZENECA-2010SE22647

PATIENT
  Age: 759 Month
  Sex: Female

DRUGS (2)
  1. SEROQUEL [Suspect]
     Indication: PAIN
     Route: 048
  2. SEROQUEL [Suspect]
     Indication: SLEEP DISORDER
     Route: 048

REACTIONS (5)
  - OFF LABEL USE [None]
  - SHOULDER OPERATION [None]
  - DRUG DOSE OMISSION [None]
  - THERAPEUTIC RESPONSE UNEXPECTED [None]
  - MALAISE [None]
